FAERS Safety Report 10423683 (Version 1)
Quarter: 2014Q3

REPORT INFORMATION
  Report Type: Spontaneous
  Country: US (occurrence: US)
  Receive Date: 20140902
  Receipt Date: 20140902
  Transmission Date: 20150326
  Serious: Yes (Other)
  Sender: FDA-Public Use
  Company Number: US-RB-068275-14

PATIENT
  Age: 8 Year
  Sex: Male

DRUGS (1)
  1. CHILDRENS MUCINEX COUGH [Suspect]
     Active Substance: DEXTROMETHORPHAN HYDROBROMIDE\GUAIFENESIN
     Indication: PRODUCT USED FOR UNKNOWN INDICATION
     Dosage: TOOK 1 DOSE OF 7ML ON 25-AUG-2014. PATIENT LAST TOOK THE DRUG ON 25-AUG-2014.
     Route: 065
     Dates: start: 20140825

REACTIONS (2)
  - Urticaria [Recovered/Resolved]
  - Eye swelling [Recovered/Resolved]

NARRATIVE: CASE EVENT DATE: 20140825
